FAERS Safety Report 5656972-0 (Version None)
Quarter: 2008Q1

REPORT INFORMATION
  Report Type: 
  Country: None (occurrence: None)
  Receive Date: 20080310
  Receipt Date: 20080304
  Transmission Date: 20080703
  Serious: Yes (Hospitalization)
  Sender: FDA-Public Use
  Company Number: B0505146A

PATIENT
  Age: 20 Year
  Sex: Male
  Weight: 46 kg

DRUGS (7)
  1. ZOVIRAX [Suspect]
     Dosage: 500MG THREE TIMES PER DAY
     Route: 042
     Dates: start: 20080118, end: 20080122
  2. MEROPEN [Concomitant]
     Dosage: 1G PER DAY
     Route: 042
     Dates: start: 20080118, end: 20080122
  3. GLYCEOL [Concomitant]
     Dosage: 200ML TWICE PER DAY
     Route: 042
     Dates: start: 20080118, end: 20080123
  4. SOLITA-T NO.3 [Concomitant]
     Dosage: 1500ML PER DAY
     Route: 042
     Dates: start: 20080118, end: 20080123
  5. GLUCOSE [Concomitant]
     Dosage: 120ML PER DAY
     Route: 042
     Dates: start: 20080118, end: 20080123
  6. VITAMEDIN [Concomitant]
     Route: 042
     Dates: start: 20080118, end: 20080128
  7. ISOTONIC SODIUM CHLORIDE SOLUTION [Concomitant]
     Dosage: 300ML PER DAY
     Route: 042
     Dates: start: 20080118, end: 20080122

REACTIONS (15)
  - ABNORMAL BEHAVIOUR [None]
  - BLEPHAROSPASM [None]
  - CONVULSION [None]
  - DISORIENTATION [None]
  - DYSLALIA [None]
  - HYPERKINESIA [None]
  - LOGORRHOEA [None]
  - NYSTAGMUS [None]
  - POSTRENAL FAILURE [None]
  - RENAL FAILURE ACUTE [None]
  - SOMNOLENCE [None]
  - SPEECH DISORDER [None]
  - TOXIC ENCEPHALOPATHY [None]
  - TREMOR [None]
  - URINARY RETENTION [None]
